FAERS Safety Report 8275992-3 (Version None)
Quarter: 2012Q2

REPORT INFORMATION
  Report Type: 
  Country: None (occurrence: None)
  Receive Date: 20120412
  Receipt Date: 20120410
  Transmission Date: 20120825
  Serious: Yes (Death)
  Sender: FDA-Public Use
  Company Number: US-PFIZER INC-2012048404

PATIENT
  Sex: Female

DRUGS (2)
  1. SUTENT [Suspect]
  2. SUTENT [Suspect]
     Indication: RENAL CANCER
     Dosage: 50 MG,DAILY
     Route: 048
     Dates: start: 20120124, end: 20120128

REACTIONS (2)
  - RENAL CANCER METASTATIC [None]
  - DISEASE PROGRESSION [None]
